FAERS Safety Report 7608609-9 (Version None)
Quarter: 2011Q3

REPORT INFORMATION
  Report Type: 
  Country: None (occurrence: None)
  Receive Date: 20110714
  Receipt Date: 20110707
  Transmission Date: 20111222
  Serious: Yes (Death, Hospitalization)
  Sender: FDA-Public Use
  Company Number: PHHY2011IL40340

PATIENT
  Age: 75 Year
  Sex: Female

DRUGS (2)
  1. SANDOSTATIN LAR [Suspect]
     Indication: ACROMEGALY
     Dosage: 20 MG EVERY 28 DAYS
     Dates: start: 20110217
  2. SANDOSTATIN LAR [Suspect]
     Indication: CARCINOID TUMOUR
     Dosage: 20 MG EVERY 28 DAYS
     Dates: start: 20110417, end: 20110610

REACTIONS (4)
  - HYPONATRAEMIA [None]
  - ASCITES [None]
  - NEOPLASM MALIGNANT [None]
  - GENERAL PHYSICAL HEALTH DETERIORATION [None]
